FAERS Safety Report 8104155-7 (Version None)
Quarter: 2012Q1

REPORT INFORMATION
  Report Type: 
  Country: None (occurrence: None)
  Receive Date: 20120201
  Receipt Date: 20120126
  Transmission Date: 20120608
  Serious: Yes (Death, Other)
  Sender: FDA-Public Use
  Company Number: US-BRISTOL-MYERS SQUIBB COMPANY-16369175

PATIENT
  Age: 65 Year
  Sex: Female

DRUGS (14)
  1. ORENCIA [Suspect]
     Dates: start: 20120118
  2. TRAMADOL HCL [Concomitant]
  3. ASPIRIN [Concomitant]
  4. VITAMIN D [Concomitant]
  5. CALCIUM + VITAMIN D [Concomitant]
  6. CRESTOR [Concomitant]
  7. ZETIA [Concomitant]
  8. ISOSORBIDE DINITRATE [Concomitant]
  9. FUROSEMIDE [Concomitant]
  10. MAGNESIUM HYDROXIDE TAB [Concomitant]
  11. OMEPRAZOLE [Concomitant]
  12. DENOSUMAB [Concomitant]
     Dosage: PROLIA
  13. FOLIC ACID [Concomitant]
  14. NITROLINGUAL [Concomitant]
     Dosage: IF NEEDED. NITROSUBLINGUAL

REACTIONS (1)
  - MYOCARDIAL INFARCTION [None]
